FAERS Safety Report 11781277 (Version 1)
Quarter: 2015Q4

REPORT INFORMATION
  Report Type: Spontaneous
  Country: US (occurrence: US)
  Receive Date: 20151126
  Receipt Date: 20151126
  Transmission Date: 20160305
  Serious: Yes (Death)
  Sender: FDA-Public Use
  Company Number: US-APOTEX-2015AP014843

PATIENT
  Age: 48 Year
  Sex: Male

DRUGS (1)
  1. METFORMIN HYDROCHLORIDE. [Suspect]
     Active Substance: METFORMIN HYDROCHLORIDE
     Indication: INTENTIONAL OVERDOSE
     Dosage: 90 TABLETS OF 500MG
     Route: 048

REACTIONS (4)
  - Multi-organ failure [Fatal]
  - Lactic acidosis [Fatal]
  - Acute respiratory distress syndrome [Fatal]
  - Intentional overdose [Fatal]
